FAERS Safety Report 5630222-3 (Version None)
Quarter: 2008Q1

REPORT INFORMATION
  Report Type: 
  Country: None (occurrence: None)
  Receive Date: 20080219
  Receipt Date: 20080206
  Transmission Date: 20080703
  Serious: No
  Sender: FDA-Public Use
  Company Number: IT-ELI_LILLY_AND_COMPANY-IT200802002687

PATIENT
  Age: 30 Year
  Sex: Male
  Weight: 35 kg

DRUGS (6)
  1. ZYPREXA [Suspect]
     Indication: PSYCHOTIC DISORDER
     Dosage: 2.5 MG, UNK
     Route: 048
     Dates: start: 20080101, end: 20080101
  2. ANAFRANIL [Concomitant]
     Dosage: 75 MG, UNK
     Route: 048
     Dates: start: 20040101
  3. PAROXETINE HCL [Concomitant]
     Dosage: 1 D/F, UNK
     Route: 048
     Dates: start: 20040101
  4. FERRUM [Concomitant]
     Indication: HYPOSIDERAEMIA
     Route: 048
  5. FOLIC ACID [Concomitant]
     Indication: HYPOSIDERAEMIA
  6. VITAMINS [Concomitant]
     Indication: HYPOSIDERAEMIA

REACTIONS (2)
  - ANAEMIA [None]
  - LEUKOPENIA [None]
